FAERS Safety Report 21002988 (Version 2)
Quarter: 2022Q3

REPORT INFORMATION
  Report Type: Spontaneous
  Country: US (occurrence: US)
  Receive Date: 20220624
  Receipt Date: 20220728
  Transmission Date: 20221026
  Serious: Yes (Other)
  Sender: FDA-Public Use
  Company Number: US-ORGANON-O2206USA001960

PATIENT
  Age: 34 Year
  Sex: Female

DRUGS (1)
  1. NEXPLANON [Suspect]
     Active Substance: ETONOGESTREL
     Indication: Contraception
     Dosage: 1 IMPLANT IN LEFT ARM
     Route: 059
     Dates: start: 20220616

REACTIONS (10)
  - Device expulsion [Not Recovered/Not Resolved]
  - Feeling abnormal [Unknown]
  - Medical device site discomfort [Unknown]
  - Pain in extremity [Unknown]
  - Implant site bruising [Unknown]
  - Implant site erythema [Unknown]
  - Implant site pain [Unknown]
  - Anxiety [Not Recovered/Not Resolved]
  - Mood swings [Unknown]
  - Product prescribing issue [Unknown]

NARRATIVE: CASE EVENT DATE: 20220601
